FAERS Safety Report 14345754 (Version 5)
Quarter: 2018Q3

REPORT INFORMATION
  Report Type: Spontaneous
  Country: US (occurrence: US)
  Receive Date: 20180103
  Receipt Date: 20180908
  Transmission Date: 20181010
  Serious: Yes (Hospitalization, Other)
  Sender: FDA-Public Use
  Company Number: US-BRISTOL-MYERS SQUIBB COMPANY-BMS-2017-116435

PATIENT
  Sex: Female
  Weight: 69.5 kg

DRUGS (1)
  1. YERVOY [Suspect]
     Active Substance: IPILIMUMAB
     Indication: METASTATIC MALIGNANT MELANOMA
     Dosage: 850 MG, UNK
     Route: 042
     Dates: start: 20170713, end: 20180329

REACTIONS (4)
  - Campylobacter gastroenteritis [Unknown]
  - Nausea [Unknown]
  - Prescribed overdose [Unknown]
  - Weight decreased [Unknown]
